FAERS Safety Report 9463559 (Version 1)
Quarter: 2013Q3

REPORT INFORMATION
  Report Type: Spontaneous
  Country: IT (occurrence: IT)
  Receive Date: 20130819
  Receipt Date: 20130819
  Transmission Date: 20140515
  Serious: Yes (Other)
  Sender: FDA-Public Use
  Company Number: IT-BRISTOL-MYERS SQUIBB COMPANY-19179217

PATIENT
  Age: 86 Year
  Sex: Female

DRUGS (5)
  1. COUMADIN TABS 5 MG [Suspect]
     Indication: ATRIAL FIBRILLATION
     Dosage: 1DF=1 UNIT
     Route: 048
     Dates: start: 20130101, end: 20130702
  2. LANOXIN [Suspect]
     Indication: ATRIAL FIBRILLATION
     Dosage: LANOXIN 0.250 MG TABS?1DF=1 UNIT
     Route: 048
     Dates: start: 20130101, end: 20130702
  3. PANTOPRAZOLE [Concomitant]
     Route: 048
  4. CIPRALEX [Concomitant]
     Dosage: TABS
     Route: 048
  5. LASIX [Concomitant]
     Dosage: TABS
     Route: 048

REACTIONS (5)
  - Bradyarrhythmia [Recovering/Resolving]
  - Confusional state [Recovering/Resolving]
  - Disorientation [Recovering/Resolving]
  - Disturbance in attention [Recovering/Resolving]
  - Overdose [Recovering/Resolving]
